FAERS Safety Report 9510228 (Version 1)
Quarter: 2013Q3

REPORT INFORMATION
  Report Type: Spontaneous
  Country: US (occurrence: US)
  Receive Date: 20130909
  Receipt Date: 20130909
  Transmission Date: 20140515
  Serious: No
  Sender: FDA-Public Use
  Company Number: US-BRISTOL-MYERS SQUIBB COMPANY-18702316

PATIENT
  Age: 57 Year
  Sex: Female
  Weight: 65.3 kg

DRUGS (2)
  1. ABILIFY [Suspect]
     Indication: ANXIETY DISORDER
     Dates: start: 20121206, end: 20130307
  2. ABILIFY [Suspect]
     Indication: MAJOR DEPRESSION
     Dates: start: 20121206, end: 20130307

REACTIONS (1)
  - Nightmare [Unknown]
